FAERS Safety Report 19087132 (Version 1)
Quarter: 2021Q2

REPORT INFORMATION
  Report Type: Spontaneous
  Country: US (occurrence: US)
  Receive Date: 20210402
  Receipt Date: 20210402
  Transmission Date: 20210717
  Serious: Yes (Death, Hospitalization)
  Sender: FDA-Public Use
  Company Number: None

PATIENT
  Age: 63 Year
  Sex: Female
  Weight: 78.11 kg

DRUGS (2)
  1. CISPLATIN 50MG [Suspect]
     Active Substance: CISPLATIN
     Dates: end: 20210225
  2. GEMCITABINE HYDROCHLORIDE 2000MG [Suspect]
     Active Substance: GEMCITABINE HYDROCHLORIDE
     Dates: end: 20210225

REACTIONS (4)
  - Disease complication [None]
  - Hypotension [None]
  - Colitis [None]
  - Sepsis [None]

NARRATIVE: CASE EVENT DATE: 20210305
